FAERS Safety Report 19125107 (Version 9)
Quarter: 2022Q3

REPORT INFORMATION
  Report Type: Report from Study
  Country: KR (occurrence: None)
  Receive Date: 20210412
  Receipt Date: 20220927
  Transmission Date: 20221027
  Serious: Yes (Hospitalization)
  Sender: FDA-Public Use
  Company Number: KR-ROCHE-2807264

PATIENT
  Age: 64 Year
  Sex: Female
  Weight: 61.5 kg

DRUGS (29)
  1. TIRAGOLUMAB [Suspect]
     Active Substance: TIRAGOLUMAB
     Indication: Small cell lung cancer extensive stage
     Dosage: ON 16/MAR/2021, SHE RECEIVED THE MOST RECENT DOSE OF BLINDED MTIG7192A PRIOR TO SERIOUS ADVERSE EVEN
     Route: 042
     Dates: start: 20201222
  2. CARBOPLATIN [Suspect]
     Active Substance: CARBOPLATIN
     Indication: Small cell lung cancer extensive stage
     Dosage: ON 16/MAR/2021, SHE RECEIVED THE MOST RECENT DOSE OF CARBOPLATIN (615 MG) PRIOR TO SERIOUS ADVERSE E
     Route: 042
     Dates: start: 20201222
  3. ETOPOSIDE [Suspect]
     Active Substance: ETOPOSIDE
     Indication: Small cell lung cancer extensive stage
     Dosage: ON 18/MAR/2021, SHE RECEIVED THE MOST RECENT DOSE OF THE ETOPOSIDE (166 MG) PRIOR TO SERIOUS ADVERSE
     Route: 042
     Dates: start: 20201222
  4. ATEZOLIZUMAB [Suspect]
     Active Substance: ATEZOLIZUMAB
     Indication: Small cell lung cancer extensive stage
     Dosage: ON 16/MAR/2021, SHE RECEIVED MOST RECENT DOSE OF ATEZOLIZUMAB (1200 MG) PRIOR TO SERIOUS ADVERSE EVE
     Route: 042
     Dates: start: 20201222
  5. PRAVASTATIN [Concomitant]
     Active Substance: PRAVASTATIN
     Indication: Hyperlipidaemia
     Dates: start: 20200722
  6. ACETAMINOPHEN [Concomitant]
     Active Substance: ACETAMINOPHEN
     Indication: Arthralgia
     Dates: start: 20210315, end: 20210329
  7. ACETAMINOPHEN [Concomitant]
     Active Substance: ACETAMINOPHEN
     Route: 048
     Dates: start: 20210409
  8. DEXAMETHASONE [Concomitant]
     Active Substance: DEXAMETHASONE
     Indication: Premedication
     Route: 042
     Dates: start: 20210316, end: 20210316
  9. APREPITANT [Concomitant]
     Active Substance: APREPITANT
     Indication: Premedication
     Dates: start: 20210316, end: 20210316
  10. APREPITANT [Concomitant]
     Active Substance: APREPITANT
     Dates: start: 20210317, end: 20210318
  11. SALINE [Concomitant]
     Active Substance: SODIUM CHLORIDE
     Dates: start: 20210316, end: 20210318
  12. ZOLPIDEM TARTRATE [Concomitant]
     Active Substance: ZOLPIDEM TARTRATE
     Indication: Insomnia
     Dates: start: 20210317, end: 20210317
  13. ACETAMINOPHEN;TRAMADOL [Concomitant]
     Indication: Arthralgia
     Dates: start: 20210318, end: 20210329
  14. PREGABALIN [Concomitant]
     Active Substance: PREGABALIN
     Indication: Arthralgia
     Dates: start: 20210330, end: 20210406
  15. OXYCODONE HYDROCHLORIDE [Concomitant]
     Active Substance: OXYCODONE HYDROCHLORIDE
     Indication: Arthralgia
     Dates: start: 20210330, end: 20210406
  16. VIMOVO [Concomitant]
     Active Substance: ESOMEPRAZOLE MAGNESIUM\NAPROXEN
     Indication: Arthralgia
     Dates: start: 20210330, end: 20210406
  17. ACYCLOVIR [Concomitant]
     Active Substance: ACYCLOVIR
     Indication: Prophylaxis
     Dates: start: 20210409
  18. LEVOFLOXACIN [Concomitant]
     Active Substance: LEVOFLOXACIN
     Indication: Prophylaxis
     Dates: start: 20210409
  19. SULFAMETHOXAZOLE\TRIMETHOPRIM [Concomitant]
     Active Substance: SULFAMETHOXAZOLE\TRIMETHOPRIM
     Indication: Prophylaxis
     Dates: start: 20210409
  20. LAFUTIDINE [Concomitant]
     Active Substance: LAFUTIDINE
     Indication: Prophylaxis
     Route: 048
     Dates: start: 20210423, end: 20210430
  21. LANSOPRAZOLE [Concomitant]
     Active Substance: LANSOPRAZOLE
     Indication: Prophylaxis
     Route: 048
     Dates: start: 20210430
  22. PANTOPRAZOLE [Concomitant]
     Active Substance: PANTOPRAZOLE
     Indication: Prophylaxis
     Dates: start: 20210408, end: 20210422
  23. ZOLPIDEM [Concomitant]
     Active Substance: ZOLPIDEM TARTRATE
     Indication: Insomnia
     Dates: start: 20210408, end: 20210408
  24. ZOLPIDEM [Concomitant]
     Active Substance: ZOLPIDEM TARTRATE
     Dates: start: 20210423, end: 20210423
  25. SODIUM CHLORIDE [Concomitant]
     Active Substance: SODIUM CHLORIDE
     Indication: Hypotension
     Dates: start: 20210415, end: 20210416
  26. SODIUM CHLORIDE [Concomitant]
     Active Substance: SODIUM CHLORIDE
     Dates: start: 20210426, end: 20210426
  27. LACTULOSE [Concomitant]
     Active Substance: LACTULOSE
     Indication: Constipation
     Route: 048
     Dates: start: 20210410, end: 20210419
  28. IRINOTECAN [Concomitant]
     Active Substance: IRINOTECAN
     Dates: start: 20210729, end: 20220106
  29. CISPLATIN [Concomitant]
     Active Substance: CISPLATIN
     Dates: start: 20210729, end: 20220106

REACTIONS (1)
  - Neuromyotonia [Not Recovered/Not Resolved]

NARRATIVE: CASE EVENT DATE: 20210404
